FAERS Safety Report 22041243 (Version 1)
Quarter: 2023Q1

REPORT INFORMATION
  Report Type: Spontaneous
  Country: US (occurrence: None)
  Receive Date: 20230226
  Receipt Date: 20230226
  Transmission Date: 20230417
  Serious: Yes (Hospitalization)
  Sender: FDA-Public Use
  Company Number: None

PATIENT
  Age: 30 Year
  Sex: Female
  Weight: 52.16 kg

DRUGS (1)
  1. MIRENA [Suspect]
     Active Substance: LEVONORGESTREL
     Indication: Dysmenorrhoea
     Dosage: OTHER QUANTITY : 1 INJECTION ;?FREQUENCY : ONCE;?
     Route: 067
     Dates: start: 20230215, end: 20230220

REACTIONS (21)
  - Hallucination [None]
  - Pain [None]
  - Muscle spasms [None]
  - Migraine [None]
  - Pyrexia [None]
  - Dysuria [None]
  - Bladder pain [None]
  - Urethral pain [None]
  - Urinary retention [None]
  - Back pain [None]
  - Vulvovaginal burning sensation [None]
  - Headache [None]
  - Acne cystic [None]
  - Insomnia [None]
  - Hypoaesthesia [None]
  - Heavy menstrual bleeding [None]
  - Hypoaesthesia [None]
  - Nausea [None]
  - Paraesthesia [None]
  - Asthenia [None]
  - Asthenia [None]

NARRATIVE: CASE EVENT DATE: 20230223
